FAERS Safety Report 5060763-1 (Version None)
Quarter: 2006Q3

REPORT INFORMATION
  Report Type: 
  Country: None (occurrence: None)
  Receive Date: 20060725
  Receipt Date: 20060719
  Transmission Date: 20061208
  Serious: Yes (Other)
  Sender: FDA-Public Use
  Company Number: JP-AVENTIS-200612269JP

PATIENT
  Age: 37 Year
  Sex: Female

DRUGS (9)
  1. ARAVA [Suspect]
     Indication: RHEUMATOID ARTHRITIS
     Route: 048
     Dates: start: 20051014, end: 20060105
  2. ARAVA [Suspect]
     Route: 048
     Dates: start: 20060224, end: 20060331
  3. RHEUMATREX [Concomitant]
     Route: 048
     Dates: start: 20040407, end: 20050915
  4. RHEUMATREX [Concomitant]
     Route: 048
     Dates: start: 20050915, end: 20060105
  5. RHEUMATREX [Concomitant]
     Route: 048
     Dates: start: 20060106
  6. PREDNISOLONE [Concomitant]
     Route: 048
     Dates: start: 20060106
  7. LOXONIN [Concomitant]
     Route: 048
     Dates: start: 20010416
  8. MUCOSTA [Concomitant]
     Route: 048
     Dates: start: 20010416
  9. TAGAMET [Concomitant]
     Route: 048
     Dates: start: 20050916

REACTIONS (12)
  - ALANINE AMINOTRANSFERASE INCREASED [None]
  - ANOREXIA [None]
  - ASPARTATE AMINOTRANSFERASE INCREASED [None]
  - BLOOD ALKALINE PHOSPHATASE INCREASED [None]
  - BLOOD LACTATE DEHYDROGENASE INCREASED [None]
  - HEPATIC FUNCTION ABNORMAL [None]
  - NAUSEA [None]
  - POLLAKIURIA [None]
  - RADICULITIS BRACHIAL [None]
  - TENDON RUPTURE [None]
  - UPPER RESPIRATORY TRACT INFECTION [None]
  - WEIGHT DECREASED [None]
